FAERS Safety Report 10077101 (Version 3)
Quarter: 2014Q2

REPORT INFORMATION
  Report Type: Report from Study
  Country: BD (occurrence: BD)
  Receive Date: 20140414
  Receipt Date: 20140421
  Transmission Date: 20141212
  Serious: Yes (Death)
  Sender: FDA-Public Use
  Company Number: PHHY2014BD044930

PATIENT
  Age: 74 Year
  Sex: Female

DRUGS (1)
  1. ACLASTA [Suspect]
     Indication: OSTEOPOROSIS
     Dosage: 5 MG PER 10 ML
     Route: 042
     Dates: start: 20140315

REACTIONS (3)
  - Dyspnoea [Fatal]
  - Abdominal discomfort [Fatal]
  - Cardiac disorder [Unknown]
